FAERS Safety Report 6772425-0 (Version None)
Quarter: 2010Q2

REPORT INFORMATION
  Report Type: 
  Country: None (occurrence: None)
  Receive Date: 20100616
  Receipt Date: 20100304
  Transmission Date: 20101027
  Serious: No
  Sender: FDA-Public Use
  Company Number: US-ASTRAZENECA-2010SE09476

PATIENT

DRUGS (1)
  1. PULMICORT FLEXHALOR [Suspect]
     Route: 055

REACTIONS (2)
  - DRUG DOSE OMISSION [None]
  - FEELING ABNORMAL [None]
